FAERS Safety Report 5275796-X (Version None)
Quarter: 2007Q1

REPORT INFORMATION
  Report Type: 
  Country: None (occurrence: None)
  Receive Date: 20070326
  Receipt Date: 20070323
  Transmission Date: 20070707
  Serious: Yes (Other)
  Sender: FDA-Public Use
  Company Number: JP-JPN-A200701230

PATIENT
  Age: 16 Year
  Sex: Female

DRUGS (5)
  1. VALTREX [Suspect]
     Indication: HERPES SIMPLEX
     Dosage: 500MG TWICE PER DAY
     Route: 048
     Dates: start: 20030731, end: 20030731
  2. RULID [Concomitant]
     Indication: ACNE
     Dosage: 150MG TWICE PER DAY
     Route: 048
     Dates: start: 20030731, end: 20030731
  3. FLAVITAN [Concomitant]
     Indication: ACNE
     Dosage: 5MG THREE TIMES PER DAY
     Route: 048
     Dates: start: 20030731
  4. PYDOXAL [Concomitant]
     Indication: ACNE
     Dosage: 10MG THREE TIMES PER DAY
     Route: 048
     Dates: start: 20030731
  5. ANDERM [Concomitant]
     Indication: ACNE
     Dosage: 10G PER DAY
     Route: 061
     Dates: start: 20030731

REACTIONS (1)
  - RESPIRATORY DEPRESSION [None]
